FAERS Safety Report 19905553 (Version 2)
Quarter: 2022Q2

REPORT INFORMATION
  Report Type: Spontaneous
  Country: US (occurrence: US)
  Receive Date: 20210930
  Receipt Date: 20220512
  Transmission Date: 20220721
  Serious: No
  Sender: FDA-Public Use
  Company Number: US-PFIZER INC-202101109544

PATIENT
  Age: 37 Year
  Sex: Male

DRUGS (3)
  1. XELJANZ XR [Suspect]
     Active Substance: TOFACITINIB CITRATE
     Indication: Prostatic specific antigen
     Dosage: 11 MG, DAILY (TAKE 1 TABLET BY ORAL ROUTE EVERY DAY)
     Route: 048
     Dates: start: 202108
  2. XELJANZ XR [Suspect]
     Active Substance: TOFACITINIB CITRATE
     Dosage: 11 MG, DAILY (TAKE 1 TABLET BY ORAL ROUTE EVERY DAY)
     Route: 048
  3. PFIZER-BIONTECH COVID-19 VACCINE [Concomitant]
     Active Substance: TOZINAMERAN
     Dosage: UNK

REACTIONS (4)
  - Feeling abnormal [Unknown]
  - Diarrhoea [Unknown]
  - Product residue present [Unknown]
  - Insomnia [Unknown]
